FAERS Safety Report 22264923 (Version 3)
Quarter: 2023Q2

REPORT INFORMATION
  Report Type: Spontaneous
  Country: US (occurrence: US)
  Receive Date: 20230428
  Receipt Date: 20230614
  Transmission Date: 20230721
  Serious: No
  Sender: FDA-Public Use
  Company Number: US-PFIZER INC-202300167256

PATIENT
  Age: 7 Year
  Sex: Male
  Weight: 16.893 kg

DRUGS (1)
  1. GENOTROPIN [Suspect]
     Active Substance: SOMATROPIN
     Indication: Williams syndrome
     Dosage: UNK UNK, DAILY (TRYING TO GET UP TO 3MG EVERY DAY)

REACTIONS (3)
  - Device delivery system issue [Unknown]
  - Device mechanical issue [Unknown]
  - Device use issue [Unknown]
